FAERS Safety Report 9202569 (Version 1)
Quarter: 2013Q2

REPORT INFORMATION
  Report Type: Spontaneous
  Country: GB (occurrence: GB)
  Receive Date: 20130401
  Receipt Date: 20130401
  Transmission Date: 20140414
  Serious: Yes (Other)
  Sender: FDA-Public Use
  Company Number: GB-ABBOTT-12P-167-0952744-00

PATIENT
  Age: 35 Year
  Sex: Female
  Weight: 122 kg

DRUGS (23)
  1. HUMIRA [Suspect]
     Indication: ANKYLOSING SPONDYLITIS
     Dosage: FORTNIGHTLY
     Route: 058
     Dates: start: 20100305
  2. HUMIRA [Suspect]
     Dates: start: 20120520
  3. HUMIRA [Suspect]
  4. INDOMETHACIN [Concomitant]
     Indication: PRODUCT USED FOR UNKNOWN INDICATION
     Dosage: NOCTE
     Route: 048
     Dates: start: 1988, end: 20120530
  5. DF118 [Concomitant]
     Indication: PRODUCT USED FOR UNKNOWN INDICATION
     Dosage: NOCTE
     Route: 048
     Dates: end: 20120530
  6. AMITRIPTYLINE [Concomitant]
     Indication: PAIN
     Dosage: NOCTE
     Route: 048
  7. LANSOPRAZOLE [Concomitant]
     Indication: PRODUCT USED FOR UNKNOWN INDICATION
     Route: 048
     Dates: end: 20120530
  8. MEBEVERINE [Concomitant]
     Indication: PRODUCT USED FOR UNKNOWN INDICATION
     Dosage: 135 MG TDS - AS REQUIRED (PRN)
     Route: 048
  9. RANITIDINE [Concomitant]
     Indication: PRODUCT USED FOR UNKNOWN INDICATION
     Route: 048
     Dates: start: 20120606
  10. FOLIC ACID [Concomitant]
     Indication: PRODUCT USED FOR UNKNOWN INDICATION
     Route: 048
     Dates: start: 20120531
  11. PARACETAMOL [Concomitant]
     Indication: PAIN
     Route: 048
  12. PARACETAMOL [Concomitant]
     Route: 048
  13. OMEPRAZOLE [Concomitant]
     Indication: GASTROOESOPHAGEAL REFLUX PROPHYLAXIS
     Route: 048
  14. PIRITON [Concomitant]
     Indication: SEASONAL ALLERGY
     Route: 048
  15. NIFEDIPINE [Concomitant]
     Indication: PRODUCT USED FOR UNKNOWN INDICATION
     Route: 048
  16. FERROUS SULPHATE [Concomitant]
     Indication: PRODUCT USED FOR UNKNOWN INDICATION
     Route: 048
  17. CYANOCOBALAMIN [Concomitant]
     Indication: PRODUCT USED FOR UNKNOWN INDICATION
     Route: 048
  18. ADCAL D3 [Concomitant]
     Indication: PRODUCT USED FOR UNKNOWN INDICATION
     Route: 048
  19. CO-CODAMOL [Concomitant]
     Indication: PRODUCT USED FOR UNKNOWN INDICATION
     Dosage: 8/500 X 2 NOCTE
     Route: 048
  20. VENTOLIN [Concomitant]
     Indication: PRODUCT USED FOR UNKNOWN INDICATION
     Route: 055
  21. BECLOMETHASONE [Concomitant]
     Indication: PRODUCT USED FOR UNKNOWN INDICATION
     Route: 055
  22. HUMALOG [Concomitant]
     Indication: PRODUCT USED FOR UNKNOWN INDICATION
     Dosage: WITH MEALS
  23. INSUMAN BASAL [Concomitant]
     Indication: PRODUCT USED FOR UNKNOWN INDICATION
     Dosage: NOCTE

REACTIONS (7)
  - Pre-eclampsia [Unknown]
  - Lower respiratory tract infection [Recovered/Resolved]
  - Vaginal haemorrhage [Unknown]
  - Infection [Unknown]
  - Lower respiratory tract infection [Recovered/Resolved]
  - Haemorrhage in pregnancy [Unknown]
  - Heart rate increased [Unknown]
